FAERS Safety Report 6738329-4 (Version None)
Quarter: 2010Q2

REPORT INFORMATION
  Report Type: 
  Country: None (occurrence: None)
  Receive Date: 20100524
  Receipt Date: 20100510
  Transmission Date: 20101027
  Serious: Yes (Other)
  Sender: FDA-Public Use
  Company Number: US-ELI_LILLY_AND_COMPANY-US201002001466

PATIENT
  Sex: Female

DRUGS (8)
  1. FORTEO [Suspect]
     Indication: OSTEOPOROSIS
     Dosage: 20 UG, DAILY (1/D)
     Dates: start: 20090101
  2. CALCIUM [Concomitant]
  3. PRILOSEC [Concomitant]
  4. VITAMIN D [Concomitant]
  5. ADVAIR DISKUS 100/50 [Concomitant]
  6. PROAIR HFA [Concomitant]
  7. AVELOX [Concomitant]
  8. MEDROL [Concomitant]

REACTIONS (4)
  - BACK PAIN [None]
  - COUGH [None]
  - FEELING ABNORMAL [None]
  - HEADACHE [None]
